FAERS Safety Report 11456411 (Version 3)
Quarter: 2015Q4

REPORT INFORMATION
  Report Type: Report from Study
  Country: RO (occurrence: RO)
  Receive Date: 20150903
  Receipt Date: 20151026
  Transmission Date: 20160304
  Serious: Yes (Hospitalization)
  Sender: FDA-Public Use
  Company Number: RO-ABBVIE-15P-135-1454156-00

PATIENT
  Sex: Male

DRUGS (3)
  1. SIOFOR [Concomitant]
     Active Substance: METFORMIN HYDROCHLORIDE
     Indication: TYPE 2 DIABETES MELLITUS
     Route: 048
  2. DUODOPA [Suspect]
     Active Substance: CARBIDOPA\LEVODOPA
     Indication: PARKINSON^S DISEASE
     Dosage: CR 8.7 ML/H, ED 8.5 ML; 24/24 H
     Route: 050
     Dates: start: 20141104
  3. OMNIC TOCAS [Concomitant]
     Indication: URETHRAL ADENOMA
     Route: 048

REACTIONS (5)
  - Inflammation [Recovered/Resolved]
  - Fibrosis [Recovered/Resolved]
  - Device issue [Not Recovered/Not Resolved]
  - Post procedural infection [Not Recovered/Not Resolved]
  - Device issue [Unknown]
